FAERS Safety Report 8431816-2 (Version None)
Quarter: 2012Q2

REPORT INFORMATION
  Report Type: 
  Country: None (occurrence: None)
  Receive Date: 20120607
  Receipt Date: 20120607
  Transmission Date: 20120825
  Serious: Yes (Hospitalization)
  Sender: FDA-Public Use
  Company Number: None

PATIENT
  Sex: Female
  Weight: 70.2 kg

DRUGS (1)
  1. CYCLOPHOSPHAMIDE [Suspect]
     Dosage: 4272 MG

REACTIONS (1)
  - MYELODYSPLASTIC SYNDROME [None]
